FAERS Safety Report 4434287-6 (Version None)
Quarter: 2004Q3

REPORT INFORMATION
  Report Type: 
  Country: None (occurrence: None)
  Receive Date: 20040825
  Receipt Date: 20040810
  Transmission Date: 20050211
  Serious: Yes (Other)
  Sender: FDA-Public Use
  Company Number: DSA_24822_2004

PATIENT
  Age: 64 Year
  Sex: Female

DRUGS (6)
  1. ENALAPRIL MALEATE [Suspect]
     Indication: HYPERTENSION
     Dosage: 2.5 MG QD PO
     Route: 048
     Dates: start: 20040401
  2. TYLER [Concomitant]
  3. ASCORBIC ACID [Concomitant]
  4. VITAMIN E [Concomitant]
  5. OS-CAL D [Concomitant]
  6. GINKGO BILOBA EXTRACT [Concomitant]

REACTIONS (7)
  - ASTHMA [None]
  - CHEST PAIN [None]
  - COUGH [None]
  - DYSGEUSIA [None]
  - EXTRASYSTOLES [None]
  - MUSCLE CRAMP [None]
  - PHARYNGOLARYNGEAL PAIN [None]
